FAERS Safety Report 9705138 (Version 1)
Quarter: 2013Q4

REPORT INFORMATION
  Report Type: Spontaneous
  Country: US (occurrence: US)
  Receive Date: 20131122
  Receipt Date: 20131122
  Transmission Date: 20140711
  Serious: Yes (Disabling, Congenital Anomaly)
  Sender: FDA-Public Use
  Company Number: US-BAYER-2013-140289

PATIENT
  Sex: 0

DRUGS (1)
  1. MIRENA [Suspect]
     Dosage: UNK
     Route: 064

REACTIONS (2)
  - Congenital anomaly [None]
  - Learning disability [None]
